FAERS Safety Report 13641741 (Version 2)
Quarter: 2017Q2

REPORT INFORMATION
  Report Type: Spontaneous
  Country: US (occurrence: US)
  Receive Date: 20170612
  Receipt Date: 20170615
  Transmission Date: 20170830
  Serious: No
  Sender: FDA-Public Use
  Company Number: US-ASTRAZENECA-2017SE60347

PATIENT
  Sex: Female

DRUGS (3)
  1. SEROQUEL [Suspect]
     Active Substance: QUETIAPINE FUMARATE
     Dosage: GENERIC 50MG FOR THREE DAYS
     Route: 065
  2. SEROQUEL [Suspect]
     Active Substance: QUETIAPINE FUMARATE
     Route: 048
  3. SEROQUEL [Suspect]
     Active Substance: QUETIAPINE FUMARATE
     Dosage: GENERIC 100 MG AT NIGHT
     Route: 065

REACTIONS (5)
  - Feeling abnormal [Unknown]
  - Chest discomfort [Unknown]
  - Night sweats [Unknown]
  - Heart rate abnormal [Unknown]
  - Head discomfort [Unknown]
